FAERS Safety Report 6007252-5 (Version None)
Quarter: 2008Q4

REPORT INFORMATION
  Report Type: 
  Country: None (occurrence: None)
  Receive Date: 20081217
  Receipt Date: 20080206
  Transmission Date: 20090506
  Serious: No
  Sender: FDA-Public Use
  Company Number: US-ASTRAZENECA-2008UW02544

PATIENT
  Age: 68 Year
  Sex: Female
  Weight: 77.1 kg

DRUGS (6)
  1. CRESTOR [Suspect]
     Indication: BLOOD CHOLESTEROL INCREASED
     Dosage: ONE HALF EVERY OTHER NIGHT
     Route: 048
  2. CRESTOR [Suspect]
     Dosage: ONE HALF EVERY NIGHT
     Route: 048
  3. COZAAR [Concomitant]
  4. FISH OIL [Concomitant]
  5. FOSAMAX [Concomitant]
  6. ACIPHEX [Concomitant]

REACTIONS (2)
  - FEELING COLD [None]
  - RASH [None]
